FAERS Safety Report 4325707-6 (Version None)
Quarter: 2004Q1

REPORT INFORMATION
  Report Type: 
  Country: None (occurrence: None)
  Receive Date: 20040324
  Receipt Date: 20040309
  Transmission Date: 20041129
  Serious: Yes (Hospitalization)
  Sender: FDA-Public Use
  Company Number: JP_040202684

PATIENT
  Age: 76 Year
  Sex: Male

DRUGS (5)
  1. PERMAX [Suspect]
     Indication: PARKINSON'S DISEASE
     Dosage: 300 UG DAY
     Dates: start: 20031215, end: 20031222
  2. ARTANE [Concomitant]
  3. NORVASC [Concomitant]
  4. MENESIT [Concomitant]
  5. FENET (CHLORPHENESIN CARBAMATE) [Concomitant]

REACTIONS (4)
  - BLOOD CREATINE PHOSPHOKINASE INCREASED [None]
  - BLOOD LACTATE DEHYDROGENASE INCREASED [None]
  - GAIT DISTURBANCE [None]
  - PAIN IN EXTREMITY [None]
